FAERS Safety Report 4569073-X (Version None)
Quarter: 2005Q1

REPORT INFORMATION
  Report Type: 
  Country: None (occurrence: None)
  Receive Date: 20050126
  Receipt Date: 20050126
  Transmission Date: 20050727
  Serious: No
  Sender: FDA-Public Use
  Company Number: None

PATIENT
  Age: 53 Year
  Sex: Female

DRUGS (1)
  1. ATIVAN [Suspect]
     Dosage: TAKE ONE TABET TID

REACTIONS (5)
  - DEPRESSION [None]
  - GENERALISED ANXIETY DISORDER [None]
  - HEART RATE INCREASED [None]
  - INSOMNIA [None]
  - PHARMACEUTICAL PRODUCT COMPLAINT [None]
